FAERS Safety Report 20988434 (Version 1)
Quarter: 2022Q2

REPORT INFORMATION
  Report Type: Report from Study
  Country: US (occurrence: US)
  Receive Date: 20220621
  Receipt Date: 20220621
  Transmission Date: 20220721
  Serious: Yes (Other)
  Sender: FDA-Public Use
  Company Number: US-JNJFOC-20220632605

PATIENT
  Sex: Male

DRUGS (1)
  1. SIMPONI [Suspect]
     Active Substance: GOLIMUMAB
     Indication: Ankylosing spondylitis
     Route: 058
     Dates: start: 20220529

REACTIONS (5)
  - Rheumatoid arthritis [Unknown]
  - Gait inability [Unknown]
  - Injection site bruising [Recovering/Resolving]
  - Fatigue [Recovered/Resolved]
  - Inappropriate schedule of product administration [Unknown]
